FAERS Safety Report 6856040-6 (Version None)
Quarter: 2010Q3

REPORT INFORMATION
  Report Type: 
  Country: None (occurrence: None)
  Receive Date: 20100716
  Receipt Date: 20100716
  Transmission Date: 20110219
  Serious: Yes (Other)
  Sender: FDA-Public Use
  Company Number: None

PATIENT
  Sex: Male
  Weight: 88.6 kg

DRUGS (1)
  1. OXCARBAZEPINE [Suspect]
     Indication: CONVULSION
     Dosage: 7.5ML BID ORAL
     Route: 048
     Dates: start: 20100101, end: 20100601

REACTIONS (1)
  - CONVULSION [None]
